FAERS Safety Report 23304984 (Version 1)
Quarter: 2023Q4

REPORT INFORMATION
  Report Type: Other
  Country: DE (occurrence: DE)
  Receive Date: 20231218
  Receipt Date: 20231218
  Transmission Date: 20240110
  Serious: Yes (Other)
  Sender: FDA-Public Use
  Company Number: DE-DEXPHARM-20230319

PATIENT
  Age: 58 Year
  Sex: Male

DRUGS (13)
  1. ASPIRIN [Interacting]
     Active Substance: ASPIRIN
     Dosage: BECAUSE OF BLEEDING ONE TAKEN ONLY EVERY 2 DAYS
     Route: 048
  2. CETIRIZINE HYDROCHLORIDE [Concomitant]
     Active Substance: CETIRIZINE HYDROCHLORIDE
     Dosage: NOT TAKEN DAILY, ONE ON DEMAND IN MORNINGS BEFORE MEAL ; AS NECESSARY
  3. ESCITALOPRAM OXALATE [Interacting]
     Active Substance: ESCITALOPRAM OXALATE
     Dosage: ONE IN MORNINGS BEFORE MEAL
     Route: 048
  4. OMEPRAZOLE [Interacting]
     Active Substance: OMEPRAZOLE
     Indication: Dyspepsia
     Dosage: TAKEN FOR A LONG TIME, ONE IN MORNINGS BEFORE MEAL, SOMETIMES MORE ON DEMAND
  5. CHOLESTYRAMINE\DICLOFENAC [Interacting]
     Active Substance: CHOLESTYRAMINE\DICLOFENAC
     Indication: Arthritis
     Dosage: TWICE DAILY, ONE EACH IN MORNINGS AND EVENINGS
     Route: 048
  6. Atorimib 10 mg/20 mg Tabletten [Concomitant]
     Dosage: ONE IN MORNING BEFORE MEAL
  7. Atorimib 10 mg/20 mg Tabletten [Concomitant]
  8. Allopurinol 300 Heumann Tabletten [Concomitant]
     Dosage: ONE IN EVENINGS DURING OR AFTER MEAL
  9. Tamsulosin Zentiva 0.4 mg Retard-Kapseln [Concomitant]
     Dosage: ONE IN EVENINGS DURING OR AFTER MEAL
  10. Metformin Lich 500 mg Tabletten [Concomitant]
     Dosage: TWICE DAILY, ONE EACH IN MORNINGS AND EVENINGS BEFORE MEAL
  11. Losartan Axiromed 50 mg Tabletten [Concomitant]
     Indication: Essential hypertension
     Dosage: ONE IN MORNINGS BEFORE MEAL
  12. Bisprolol 5-1A Pharma 5 mg Tabletten [Concomitant]
     Dosage: ONE IN MORNINGS BEFORE MEAL
  13. L-Thyroxin 75-1A Pharma 0.075 mg Tabletten [Concomitant]
     Dosage: ONE IN MORNINGS BEFORE MEAL

REACTIONS (4)
  - Upper gastrointestinal haemorrhage [Unknown]
  - Epistaxis [Unknown]
  - Gingival bleeding [Unknown]
  - Drug interaction [Unknown]
